FAERS Safety Report 4526975-8 (Version None)
Quarter: 2004Q4

REPORT INFORMATION
  Report Type: 
  Country: None (occurrence: None)
  Receive Date: 20041126
  Receipt Date: 20040818
  Transmission Date: 20050328
  Serious: Yes (Hospitalization)
  Sender: FDA-Public Use
  Company Number: SU-2004-002509

PATIENT
  Age: 60 Year
  Sex: Female
  Weight: 92.5338 kg

DRUGS (5)
  1. BENICAR [Suspect]
     Indication: HYPERTENSION
     Dosage: 40 MG QD PO
     Route: 048
     Dates: start: 20030225, end: 20040213
  2. DYAZIDE [Concomitant]
  3. PREVACID [Concomitant]
  4. FUROSEMIDE [Concomitant]
  5. K-DUR [Concomitant]

REACTIONS (1)
  - RENAL FAILURE ACUTE [None]
